FAERS Safety Report 10049714 (Version 1)
Quarter: 2014Q1

REPORT INFORMATION
  Report Type: Spontaneous
  Country: JP (occurrence: None)
  Receive Date: 20140328
  Receipt Date: 20140328
  Transmission Date: 20141002
  Serious: Yes (Other)
  Sender: FDA-Public Use
  Company Number: 2014STPI000111

PATIENT
  Age: 62 Year
  Sex: Male

DRUGS (1)
  1. LEVOCARNITINE [Suspect]
     Indication: PRODUCT USED FOR UNKNOWN INDICATION
     Dosage: UNK UNK, QD, INTRAVENOUS
     Route: 042
     Dates: start: 20140210, end: 20140305

REACTIONS (1)
  - Pancreatic enzymes increased [None]
